FAERS Safety Report 9184942 (Version 3)
Quarter: 2013Q2

REPORT INFORMATION
  Report Type: Spontaneous
  Country: JP (occurrence: JP)
  Receive Date: 20130325
  Receipt Date: 20130408
  Transmission Date: 20140414
  Serious: Yes (Hospitalization, Other)
  Sender: FDA-Public Use
  Company Number: JP-PFIZER INC-2013080499

PATIENT
  Age: 85 Year
  Sex: Male
  Weight: 56 kg

DRUGS (16)
  1. LIPITOR [Suspect]
     Indication: HYPERLIPIDAEMIA
     Dosage: 5 MG, 1X/DAY
     Route: 048
     Dates: end: 20121105
  2. DOGMATYL [Suspect]
     Indication: DEPRESSION
     Dosage: 20 MG, 2X/DAY
     Route: 048
     Dates: end: 20121105
  3. DEPAS [Concomitant]
     Indication: DEPRESSION
     Dosage: UNK
  4. LACTOSE [Concomitant]
     Indication: CONSTIPATION
     Dosage: UNK
  5. SERMION [Concomitant]
     Dosage: UNK
     Route: 048
  6. MYSLEE [Concomitant]
     Indication: INSOMNIA
     Dosage: UNK
  7. AMOBAN [Concomitant]
     Indication: INSOMNIA
     Dosage: UNK
  8. GASTER [Concomitant]
     Indication: GASTRITIS
     Dosage: UNK
  9. S.M. POWDER [Concomitant]
     Indication: GASTRITIS
     Dosage: UNK
  10. ALOSENN [Concomitant]
     Indication: CONSTIPATION
     Dosage: UNK
  11. GASMOTIN [Concomitant]
     Indication: GASTRITIS
     Dosage: UNK
     Route: 048
  12. GLIMICRON [Concomitant]
     Indication: DIABETES MELLITUS
     Dosage: UNK
  13. SEIBULE [Concomitant]
     Indication: DIABETES MELLITUS
     Dosage: UNK
  14. ZYLORIC [Concomitant]
     Indication: HYPERURICAEMIA
     Dosage: UNK
  15. MICARDIS [Concomitant]
     Indication: HYPERTENSION
     Dosage: UNK
  16. AMLODIN [Concomitant]
     Indication: HYPERTENSION
     Dosage: UNK

REACTIONS (3)
  - Intentional drug misuse [Unknown]
  - Rhabdomyolysis [Recovering/Resolving]
  - Pneumonia pneumococcal [Recovering/Resolving]
